FAERS Safety Report 14128361 (Version 2)
Quarter: 2017Q4

REPORT INFORMATION
  Report Type: Spontaneous
  Country: US (occurrence: US)
  Receive Date: 20171026
  Receipt Date: 20171030
  Transmission Date: 20180321
  Serious: No
  Sender: FDA-Public Use
  Company Number: US-PFIZER INC-2017458615

PATIENT
  Age: 56 Year
  Sex: Female
  Weight: 102 kg

DRUGS (1)
  1. LEVOXYL [Suspect]
     Active Substance: LEVOTHYROXINE SODIUM
     Indication: THYROID DISORDER
     Dosage: 50MCG TABLET AND 125MCG TABLET BY MOUTH DAILY
     Route: 048
     Dates: start: 2003

REACTIONS (2)
  - Blood thyroid stimulating hormone increased [Unknown]
  - Drug effect incomplete [Not Recovered/Not Resolved]

NARRATIVE: CASE EVENT DATE: 201704
